FAERS Safety Report 9152175 (Version 1)
Quarter: 2013Q1

REPORT INFORMATION
  Report Type: Spontaneous
  Country: FR (occurrence: FR)
  Receive Date: 20130308
  Receipt Date: 20130308
  Transmission Date: 20140127
  Serious: Yes (Hospitalization)
  Sender: FDA-Public Use
  Company Number: FR-ROCHE-1199845

PATIENT
  Age: 59 Year
  Sex: Male

DRUGS (10)
  1. ROACTEMRA [Suspect]
     Indication: ANKYLOSING SPONDYLITIS
     Route: 042
     Dates: start: 20130115
  2. ACTISKENAN [Concomitant]
     Route: 048
  3. PARACETAMOL [Concomitant]
     Route: 048
  4. LOVENOX [Concomitant]
     Route: 058
  5. TRANSIPEG (FRANCE) [Concomitant]
     Route: 048
  6. MIOREL [Concomitant]
     Route: 048
  7. LEXOMIL [Concomitant]
     Route: 048
  8. INEXIUM [Concomitant]
     Route: 048
  9. CORTANCYL [Concomitant]
     Route: 048
  10. SKENAN [Concomitant]
     Route: 048

REACTIONS (1)
  - Polychondritis [Recovered/Resolved]
